FAERS Safety Report 10667526 (Version 1)
Quarter: 2014Q4

REPORT INFORMATION
  Report Type: Spontaneous
  Country: US (occurrence: None)
  Receive Date: 20141219
  Receipt Date: 20141219
  Transmission Date: 20150529
  Serious: Yes (Other)
  Sender: FDA-Public Use
  Company Number: None

PATIENT
  Age: 33 Year
  Sex: Female
  Weight: 115.67 kg

DRUGS (5)
  1. HUMALOG [Suspect]
     Active Substance: INSULIN LISPRO
     Indication: TYPE 1 DIABETES MELLITUS
     Dosage: VIA INSULIN PUMP?
     Dates: start: 2005, end: 2007
  2. ALTACE [Concomitant]
     Active Substance: RAMIPRIL
  3. LIPITOR [Concomitant]
     Active Substance: ATORVASTATIN CALCIUM
  4. ATENOLOL. [Concomitant]
     Active Substance: ATENOLOL
  5. NOVOLOG [Suspect]
     Active Substance: INSULIN ASPART
     Indication: TYPE 1 DIABETES MELLITUS
     Dosage: VIA INSULIN PUMP
     Dates: start: 2005, end: 2007

REACTIONS (3)
  - Implant site erythema [None]
  - Implant site pruritus [None]
  - Implant site inflammation [None]

NARRATIVE: CASE EVENT DATE: 2007
